FAERS Safety Report 17405589 (Version 1)
Quarter: 2020Q1

REPORT INFORMATION
  Report Type: Spontaneous
  Country: PT (occurrence: PT)
  Receive Date: 20200212
  Receipt Date: 20200212
  Transmission Date: 20200409
  Serious: Yes (Other)
  Sender: FDA-Public Use
  Company Number: PT-TEVA-2020-PT-1181733

PATIENT
  Sex: Female

DRUGS (6)
  1. GABAPENTINA RATIOPHARM 100 MG CAPSULAS [Suspect]
     Active Substance: GABAPENTIN
     Indication: NEURALGIA
     Dosage: 300 MILLIGRAM DAILY;
     Route: 048
     Dates: start: 20200122
  2. PANTOPRAZOLE [Concomitant]
     Active Substance: PANTOPRAZOLE
     Dosage: AT NIGTH
  3. ARTHROTEC [Concomitant]
     Active Substance: DICLOFENAC SODIUM\MISOPROSTOL
     Dosage: 1 DOSAGE FORM IS COMPOSED BY DICLOFENAC AND MISOPROSTOL
  4. MOVICOL PEDIATRICO [Concomitant]
     Dosage: 1 DOSAGE FORM IS COMPOSED BY MACROGOL + POTASSIUM CHLORIDE + SODIUM CHLORIDE AND SODIUM BICARBONATE
  5. IMSULIN [Concomitant]
     Indication: DIABETES MELLITUS
     Dosage: AT NIGTH
  6. BUPRENORPHIN [Concomitant]
     Active Substance: BUPRENORPHINE
     Indication: NEURALGIA
     Route: 058

REACTIONS (5)
  - Balance disorder [Unknown]
  - Tremor [Unknown]
  - Gait disturbance [Unknown]
  - Hallucination [Unknown]
  - Somnolence [Unknown]
